FAERS Safety Report 15486160 (Version 2)
Quarter: 2018Q4

REPORT INFORMATION
  Report Type: Report from Study
  Country: IL (occurrence: IL)
  Receive Date: 20181011
  Receipt Date: 20181016
  Transmission Date: 20190205
  Serious: Yes (Death, Hospitalization, Disabling, Other)
  Sender: FDA-Public Use
  Company Number: IL-IPSEN BIOPHARMACEUTICALS, INC.-2018-13201

PATIENT
  Age: 54 Year
  Sex: Male

DRUGS (8)
  1. RECLAST [Concomitant]
     Active Substance: ZOLEDRONIC ACID
     Dosage: 1X1X1
  2. SOMATULINE PR 30MG [Suspect]
     Active Substance: LANREOTIDE ACETATE
     Indication: NEUROENDOCRINE TUMOUR
     Dosage: 120 MG
     Route: 030
     Dates: start: 20161122
  3. CALCIUM+D MAC [Concomitant]
     Dosage: 600/200 X 60, 1X2X30
  4. AFINITOR [Concomitant]
     Active Substance: EVEROLIMUS
     Route: 048
     Dates: start: 2018
  5. GLUCOPHAGE RET [Concomitant]
     Dosage: 1X2X90
  6. FERROGRAD FOLIC [Concomitant]
     Dosage: 1X3X30
  7. AFINITOR [Concomitant]
     Active Substance: EVEROLIMUS
     Dates: start: 201805, end: 2018
  8. SOMATULINE PR 30MG [Suspect]
     Active Substance: LANREOTIDE ACETATE
     Indication: CARCINOID SYNDROME
     Dosage: 240 MG
     Route: 030

REACTIONS (16)
  - General physical health deterioration [Unknown]
  - Mobility decreased [Unknown]
  - Leukopenia [Not Recovered/Not Resolved]
  - Aortic aneurysm [Unknown]
  - Iron deficiency anaemia [Unknown]
  - Constipation [Unknown]
  - Inappropriate schedule of product administration [Unknown]
  - General physical health deterioration [Fatal]
  - Ascites [Recovering/Resolving]
  - Neoplasm progression [Unknown]
  - Haemorrhoids [Unknown]
  - Overdose [Unknown]
  - Multiple organ dysfunction syndrome [Fatal]
  - Pleural effusion [Unknown]
  - Lymphopenia [Unknown]
  - Hypercholesterolaemia [Unknown]

NARRATIVE: CASE EVENT DATE: 201704
